FAERS Safety Report 6241263-X (Version None)
Quarter: 2009Q2

REPORT INFORMATION
  Report Type: 
  Country: None (occurrence: None)
  Receive Date: 20090619
  Receipt Date: 20090619
  Transmission Date: 20091009
  Serious: Yes (Hospitalization)
  Sender: FDA-Public Use
  Company Number: None

PATIENT
  Age: 14 Year
  Sex: Female
  Weight: 45.4 kg

DRUGS (1)
  1. ETANERCEPT 50MG/ML AMGEN [Suspect]
     Indication: JUVENILE ARTHRITIS
     Dosage: 50 MG ONCE PER WEEK SQ
     Route: 058
     Dates: start: 20080506, end: 20090407

REACTIONS (5)
  - C-REACTIVE PROTEIN INCREASED [None]
  - LEUKOPENIA [None]
  - MUCOSAL INFLAMMATION [None]
  - PHARYNGITIS [None]
  - VIRAL INFECTION [None]
